APPROVED DRUG PRODUCT: ECOZA
Active Ingredient: ECONAZOLE NITRATE
Strength: 1%
Dosage Form/Route: AEROSOL, FOAM;TOPICAL
Application: N205175 | Product #001
Applicant: RESILIA PHARMACEUTICALS INC
Approved: Oct 24, 2013 | RLD: Yes | RS: Yes | Type: RX

PATENTS:
Patent 10071054 | Expires: Aug 8, 2031